FAERS Safety Report 7195612-9 (Version None)
Quarter: 2010Q4

REPORT INFORMATION
  Report Type: 
  Country: None (occurrence: None)
  Receive Date: 20101223
  Receipt Date: 20101215
  Transmission Date: 20110411
  Serious: Yes (Hospitalization)
  Sender: FDA-Public Use
  Company Number: JP-MERCK-1010USA00480

PATIENT
  Age: 56 Year
  Sex: Male
  Weight: 71 kg

DRUGS (5)
  1. DECADRON [Suspect]
     Indication: PROPHYLAXIS OF NAUSEA AND VOMITING
     Dosage: DIVIDED DOSE FREQUENCY U
     Route: 048
     Dates: start: 20100914, end: 20100915
  2. DECADRON [Suspect]
     Dosage: DAILY DOSAGE UNKNOWN
     Route: 042
     Dates: start: 20100913
  3. TS-1 [Concomitant]
     Indication: NEOPLASM MALIGNANT
     Route: 048
     Dates: start: 20100902, end: 20100906
  4. CISPLATIN [Concomitant]
     Indication: NEOPLASM MALIGNANT
     Route: 041
     Dates: start: 20100913, end: 20100913
  5. EMEND [Concomitant]
     Indication: PROPHYLAXIS OF NAUSEA AND VOMITING
     Dosage: 125-80 MG
     Route: 048
     Dates: start: 20100913, end: 20100915

REACTIONS (1)
  - WHITE BLOOD CELL COUNT INCREASED [None]
